FAERS Safety Report 22212404 (Version 1)
Quarter: 2023Q2

REPORT INFORMATION
  Report Type: Spontaneous
  Country: US (occurrence: None)
  Receive Date: 20230414
  Receipt Date: 20230414
  Transmission Date: 20230722
  Serious: No
  Sender: FDA-Public Use
  Company Number: None

PATIENT
  Age: 90 Year
  Sex: Male
  Weight: 69.5 kg

DRUGS (9)
  1. MOLNUPIRAVIR [Suspect]
     Active Substance: MOLNUPIRAVIR
     Indication: COVID-19
     Dosage: FREQUENCY : TWICE A DAY;?
     Route: 048
     Dates: start: 20230411, end: 20230412
  2. ATORVASTATIN [Concomitant]
     Active Substance: ATORVASTATIN
     Dates: start: 20170605
  3. Cyanocobalamin 250mcg [Concomitant]
     Dates: start: 20220622
  4. FUROSEMIDE [Concomitant]
     Active Substance: FUROSEMIDE
     Dates: start: 20181218
  5. LOSARTAN [Concomitant]
     Active Substance: LOSARTAN
     Dates: start: 20170605
  6. metoprolol succinate 100mg [Concomitant]
     Dates: start: 20170823
  7. sodium bicarbonate 650mg [Concomitant]
     Dates: start: 20230119
  8. TAMSULOSIN [Concomitant]
     Active Substance: TAMSULOSIN
     Dates: start: 20221206
  9. WARFARIN [Concomitant]
     Active Substance: WARFARIN
     Dates: start: 20180202

REACTIONS (3)
  - Product prescribing issue [None]
  - Bacteraemia [None]
  - Refusal of treatment by patient [None]

NARRATIVE: CASE EVENT DATE: 20230411
